FAERS Safety Report 25346002 (Version 2)
Quarter: 2025Q2

REPORT INFORMATION
  Report Type: Spontaneous
  Country: CA (occurrence: CA)
  Receive Date: 20250522
  Receipt Date: 20250630
  Transmission Date: 20250716
  Serious: No
  Sender: CELLTRION
  Company Number: CA-CELLTRION INC.-2025CA015198

PATIENT

DRUGS (1)
  1. INFLIXIMAB [Suspect]
     Active Substance: INFLIXIMAB
     Indication: Colitis ulcerative
     Route: 042
     Dates: start: 20250514

REACTIONS (2)
  - Overdose [Unknown]
  - Intentional product use issue [Unknown]
